FAERS Safety Report 10063264 (Version 1)
Quarter: 2014Q2

REPORT INFORMATION
  Report Type: Report from Study
  Country: EG (occurrence: EG)
  Receive Date: 20140407
  Receipt Date: 20140407
  Transmission Date: 20141212
  Serious: Yes (Other)
  Sender: FDA-Public Use
  Company Number: EG-SA-2014SA038730

PATIENT
  Sex: Female

DRUGS (3)
  1. LANTUS [Suspect]
     Indication: PRODUCT USED FOR UNKNOWN INDICATION
     Dosage: DOSE: 24
     Route: 058
  2. AMARYL [Suspect]
     Indication: PRODUCT USED FOR UNKNOWN INDICATION
     Dosage: DOSE: 6 (3X2)
     Route: 048
  3. BIGUANIDES [Concomitant]
     Dosage: DOSE: 2000
     Route: 048

REACTIONS (1)
  - Pancreatic carcinoma [Unknown]
